FAERS Safety Report 6447561-9 (Version None)
Quarter: 2009Q4

REPORT INFORMATION
  Report Type: 
  Country: None (occurrence: None)
  Receive Date: 20091119
  Receipt Date: 20081124
  Transmission Date: 20100525
  Serious: Yes (Other)
  Sender: FDA-Public Use
  Company Number: US-AMGEN-KDL320443

PATIENT
  Sex: Male

DRUGS (2)
  1. ENBREL [Suspect]
     Indication: GRAFT VERSUS HOST DISEASE
  2. NEORAL [Concomitant]

REACTIONS (1)
  - PANCREATITIS [None]
